FAERS Safety Report 18554538 (Version 1)
Quarter: 2020Q4

REPORT INFORMATION
  Report Type: Spontaneous
  Country: JP (occurrence: JP)
  Receive Date: 20201127
  Receipt Date: 20201127
  Transmission Date: 20210114
  Serious: Yes (Hospitalization, Other)
  Sender: FDA-Public Use
  Company Number: JP-TAKEDA-2020TUS053270

PATIENT
  Age: 39 Year
  Sex: Female

DRUGS (1)
  1. ICLUSIG [Suspect]
     Active Substance: PONATINIB
     Indication: ACUTE LYMPHOCYTIC LEUKAEMIA
     Dosage: UNK
     Route: 065

REACTIONS (7)
  - Coronary artery stenosis [Unknown]
  - Renal artery stenosis [Unknown]
  - Ventricular hypokinesia [Unknown]
  - Renal disorder [Unknown]
  - Dyspnoea exertional [Unknown]
  - Infection [Unknown]
  - Cardiac failure acute [Recovering/Resolving]
